FAERS Safety Report 8333198 (Version 3)
Quarter: 2012Q4

REPORT INFORMATION
  Report Type: Report from Study
  Country: ZA (occurrence: ZA)
  Receive Date: 20120112
  Receipt Date: 20120926
  Transmission Date: 20130627
  Serious: Yes (Hospitalization, Other)
  Sender: FDA-Public Use
  Company Number: ZA-BRISTOL-MYERS SQUIBB COMPANY-15589179

PATIENT
  Age: 58 Year
  Sex: Male

DRUGS (10)
  1. ABATACEPT [Suspect]
     Indication: RHEUMATOID ARTHRITIS
     Dosage: 19Jan09-06Jul09(IV+SC)
06Jul09-23Jan12 (SC;125mg/wk)
last dose on 23Jan12(therapy discontinued)
     Route: 058
     Dates: start: 20090119, end: 20120123
  2. METHOTREXATE [Suspect]
     Indication: RHEUMATOID ARTHRITIS
     Dosage: 07Jun2010
     Dates: start: 20061130
  3. PANAFCORT [Concomitant]
     Dates: start: 20050715
  4. TRAMADOL [Concomitant]
     Dosage: Tramahexal SR
     Dates: start: 20081211
  5. OMEPRAZOLE [Concomitant]
     Dates: start: 20110115
  6. FOLIC ACID [Concomitant]
     Dates: start: 20050202
  7. MELOXICAM [Concomitant]
     Dates: start: 20050715
  8. SULFASALAZINE [Concomitant]
  9. LEFLUNOMIDE [Concomitant]
  10. CHLOROQUINE [Concomitant]

REACTIONS (4)
  - Chronic myelomonocytic leukaemia [Not Recovered/Not Resolved]
  - Hypersplenism [Recovered/Resolved]
  - Splenomegaly [Not Recovered/Not Resolved]
  - Anaemia [Not Recovered/Not Resolved]
